FAERS Safety Report 20968542 (Version 1)
Quarter: 2022Q2

REPORT INFORMATION
  Report Type: Spontaneous
  Country: US (occurrence: US)
  Receive Date: 20220616
  Receipt Date: 20220616
  Transmission Date: 20220720
  Serious: No
  Sender: FDA-Public Use
  Company Number: US-MYLANLABS-2022M1031990

PATIENT
  Age: 69 Year
  Sex: Female
  Weight: 90.72 kg

DRUGS (2)
  1. ESTRADIOL TRANSDERMAL SYSTEM [Suspect]
     Active Substance: ESTRADIOL
     Indication: Product used for unknown indication
     Dosage: 0.01 MILLIGRAM, QD (WEEKLY)
     Route: 058
     Dates: start: 20220424, end: 20220427
  2. MONTELUKAST [Concomitant]
     Active Substance: MONTELUKAST SODIUM
     Indication: Hypersensitivity
     Dosage: UNK

REACTIONS (5)
  - Product adhesion issue [Unknown]
  - Application site pruritus [Recovered/Resolved]
  - Application site rash [Recovered/Resolved]
  - Application site vesicles [Unknown]
  - Application site erythema [Unknown]

NARRATIVE: CASE EVENT DATE: 20220424
